FAERS Safety Report 6541126-6 (Version None)
Quarter: 2010Q1

REPORT INFORMATION
  Report Type: 
  Country: None (occurrence: None)
  Receive Date: 20100118
  Receipt Date: 20091112
  Transmission Date: 20100710
  Serious: No
  Sender: FDA-Public Use
  Company Number: US-JNJFOC-20091104278

PATIENT
  Sex: Female
  Weight: 79.38 kg

DRUGS (1)
  1. INVEGA SUSTENNA [Suspect]
     Indication: BIPOLAR DISORDER
     Route: 030
     Dates: start: 20091105

REACTIONS (2)
  - DEVICE LEAKAGE [None]
  - INCORRECT DOSE ADMINISTERED [None]
